FAERS Safety Report 12979127 (Version 2)
Quarter: 2017Q1

REPORT INFORMATION
  Report Type: Spontaneous
  Country: IT (occurrence: IT)
  Receive Date: 20161128
  Receipt Date: 20170123
  Transmission Date: 20170428
  Serious: Yes (Other)
  Sender: FDA-Public Use
  Company Number: IT-GLAXOSMITHKLINE-IT2016GSK170942

PATIENT
  Age: 69 Year
  Sex: Female

DRUGS (1)
  1. BENLYSTA [Suspect]
     Active Substance: BELIMUMAB
     Indication: MYASTHENIA GRAVIS
     Dosage: 400 MG, MONTHLY
     Route: 042
     Dates: start: 20150401, end: 20161114

REACTIONS (3)
  - Off label use [Unknown]
  - Macular oedema [Recovering/Resolving]
  - Retinal vascular thrombosis [Recovering/Resolving]

NARRATIVE: CASE EVENT DATE: 20161021
